FAERS Safety Report 18558535 (Version 3)
Quarter: 2020Q4

REPORT INFORMATION
  Report Type: Report from Study
  Country: BR (occurrence: BR)
  Receive Date: 20201130
  Receipt Date: 20201226
  Transmission Date: 20210114
  Serious: Yes (Other)
  Sender: FDA-Public Use
  Company Number: NVSC2020BR312384

PATIENT
  Age: 39 Year
  Sex: Female

DRUGS (6)
  1. FULVESTRANTO [Suspect]
     Active Substance: FULVESTRANT
     Indication: METASTASES TO BONE
     Dosage: 500 MG, Q2W (EVERY 15 DAYS)
     Route: 065
     Dates: start: 20200801
  2. TRIPTORELIN [Concomitant]
     Active Substance: TRIPTORELIN
     Indication: MENOPAUSE
     Dosage: UNK
     Route: 065
  3. FULVESTRANTO [Suspect]
     Active Substance: FULVESTRANT
     Indication: BREAST CANCER
     Dosage: 500 MG, Q2W (EVERY 15 DAYS)
     Route: 065
     Dates: start: 20200815
  4. FULVESTRANTO [Suspect]
     Active Substance: FULVESTRANT
     Dosage: UNK
     Route: 065
     Dates: start: 202008
  5. FULVESTRANTO [Suspect]
     Active Substance: FULVESTRANT
     Dosage: 500 MG, Q2W (EVERY 15 DAYS)
     Route: 065
     Dates: start: 20200830
  6. ZOMETA [Concomitant]
     Active Substance: ZOLEDRONIC ACID
     Indication: METASTASES TO BONE
     Dosage: QMO (1 INJECTION)
     Route: 065

REACTIONS (9)
  - Injection site pain [Not Recovered/Not Resolved]
  - Tumour marker increased [Unknown]
  - Drug ineffective [Unknown]
  - Metastases to liver [Not Recovered/Not Resolved]
  - Breast cancer [Unknown]
  - Malignant neoplasm progression [Unknown]
  - Injection site mass [Recovering/Resolving]
  - Injection site warmth [Recovering/Resolving]
  - Pain in extremity [Recovered/Resolved]

NARRATIVE: CASE EVENT DATE: 202008
